FAERS Safety Report 7737191-0 (Version None)
Quarter: 2011Q3

REPORT INFORMATION
  Report Type: 
  Country: None (occurrence: None)
  Receive Date: 20110908
  Receipt Date: 20110826
  Transmission Date: 20111222
  Serious: Yes (Death, Hospitalization, Other)
  Sender: FDA-Public Use
  Company Number: US-CELGENEUS-163-21880-11043744

PATIENT
  Sex: Male

DRUGS (10)
  1. MORPHINE [Concomitant]
     Indication: PAIN
     Dosage: 15 MILLIGRAM
     Route: 065
     Dates: start: 20100401, end: 20110427
  2. REVLIMID [Suspect]
     Indication: MULTIPLE MYELOMA
     Dosage: 25 MILLIGRAM
     Route: 048
     Dates: start: 20100525
  3. FOLIC ACID [Concomitant]
     Indication: SUPPLEMENTATION THERAPY
     Dosage: 1 MILLIGRAM
     Route: 065
     Dates: start: 20100701, end: 20110427
  4. LASIX [Concomitant]
     Dosage: 40 MILLIGRAM
     Route: 065
     Dates: start: 20100615, end: 20110427
  5. REVLIMID [Suspect]
     Dosage: 5 MILLIGRAM
     Route: 048
     Dates: start: 20100801, end: 20110424
  6. XANAX [Concomitant]
     Indication: ANXIETY
     Dosage: 1 MILLIGRAM
     Route: 065
     Dates: start: 20100701, end: 20110427
  7. ZYLOPRIM [Concomitant]
     Indication: GOUT
     Dosage: 100 MILLIGRAM
     Route: 065
     Dates: start: 20100401, end: 20110401
  8. VITAMIN B1 TAB [Concomitant]
     Indication: SUPPLEMENTATION THERAPY
     Dosage: 100 MILLIGRAM
     Route: 065
     Dates: start: 20100701, end: 20110401
  9. ASPIRIN [Concomitant]
     Indication: THROMBOSIS PROPHYLAXIS
     Dosage: 325 MILLIGRAM
     Route: 065
     Dates: start: 20100101, end: 20110401
  10. REVLIMID [Suspect]
     Dosage: 10 MILLIGRAM
     Route: 048
     Dates: start: 20100601

REACTIONS (2)
  - BONE MARROW FAILURE [None]
  - MULTIPLE MYELOMA [None]
